FAERS Safety Report 10025358 (Version 1)
Quarter: 2014Q1

REPORT INFORMATION
  Report Type: Spontaneous
  Country: SE (occurrence: SE)
  Receive Date: 20140320
  Receipt Date: 20140320
  Transmission Date: 20141002
  Serious: Yes (Death)
  Sender: FDA-Public Use
  Company Number: SE-GLAXOSMITHKLINE-B0977658A

PATIENT
  Age: 70 Year
  Sex: Male

DRUGS (2)
  1. ARIXTRA [Suspect]
     Indication: MYOCARDIAL INFARCTION
     Route: 058
     Dates: start: 20131012
  2. BIVALIRUDIN [Suspect]
     Indication: MYOCARDIAL INFARCTION
     Route: 011
     Dates: start: 20131012

REACTIONS (1)
  - Cerebral haemorrhage [Fatal]
